FAERS Safety Report 5463087-3 (Version None)
Quarter: 2007Q3

REPORT INFORMATION
  Report Type: 
  Country: None (occurrence: None)
  Receive Date: 20070920
  Receipt Date: 20070912
  Transmission Date: 20080115
  Serious: Yes (Hospitalization)
  Sender: FDA-Public Use
  Company Number: FR-AVENTIS-200712910FR

PATIENT
  Age: 58 Year
  Sex: Male

DRUGS (10)
  1. FLAGYL [Suspect]
     Route: 048
     Dates: start: 20070718, end: 20070730
  2. OFLOCET                            /00731801/ [Suspect]
     Route: 048
     Dates: start: 20070728, end: 20070731
  3. LASIX [Suspect]
     Route: 048
     Dates: start: 20070708, end: 20070806
  4. LOXEN [Suspect]
     Route: 048
     Dates: start: 20070716, end: 20070806
  5. PLAVIX [Concomitant]
     Route: 048
     Dates: start: 20070719
  6. TRIATEC                            /00885601/ [Concomitant]
  7. KARDEGIC                           /00002703/ [Concomitant]
  8. SECTRAL [Concomitant]
  9. LANTUS [Concomitant]
  10. NOVORAPID [Concomitant]
     Route: 058

REACTIONS (1)
  - ERYTHEMA MULTIFORME [None]
